FAERS Safety Report 9697367 (Version 2)
Quarter: 2013Q4

REPORT INFORMATION
  Report Type: Spontaneous
  Country: PH (occurrence: PH)
  Receive Date: 20131120
  Receipt Date: 20131120
  Transmission Date: 20140711
  Serious: Yes (Other)
  Sender: FDA-Public Use
  Company Number: PH-009507513-1311PHL004207

PATIENT
  Age: 30 Year
  Sex: Female

DRUGS (1)
  1. IMPLANON [Suspect]
     Indication: CONTRACEPTION
     Dosage: 68 MG ETONOGESTREL
     Route: 059
     Dates: start: 201305

REACTIONS (2)
  - Device breakage [Unknown]
  - Implant site pruritus [Unknown]
